FAERS Safety Report 8382557-1 (Version None)
Quarter: 2012Q2

REPORT INFORMATION
  Report Type: 
  Country: None (occurrence: None)
  Receive Date: 20120524
  Receipt Date: 20120515
  Transmission Date: 20120825
  Serious: Yes (Hospitalization)
  Sender: FDA-Public Use
  Company Number: US-JNJFOC-20120514501

PATIENT
  Age: 77 Year
  Sex: Male

DRUGS (2)
  1. MULTAQ [Concomitant]
  2. XARELTO [Suspect]
     Indication: PRODUCT USED FOR UNKNOWN INDICATION
     Route: 048
     Dates: start: 20111208, end: 20120316

REACTIONS (3)
  - GINGIVAL BLEEDING [None]
  - BLOOD URINE PRESENT [None]
  - DRUG PRESCRIBING ERROR [None]
